FAERS Safety Report 9843730 (Version 2)
Quarter: 2014Q1

REPORT INFORMATION
  Report Type: Spontaneous
  Country: JP (occurrence: JP)
  Receive Date: 20140126
  Receipt Date: 20140126
  Transmission Date: 20141002
  Serious: Yes (Other)
  Sender: FDA-Public Use
  Company Number: JP-AMGEN-JPNSP2013071029

PATIENT
  Age: 77 Year
  Sex: Male
  Weight: 64 kg

DRUGS (11)
  1. RANMARK [Suspect]
     Indication: METASTASES TO BONE
     Dosage: 120 MG, ABOUT 5 TIMES
     Route: 065
     Dates: start: 20130430, end: 20130820
  2. CALFINA [Concomitant]
     Dosage: 1 MUG, QD
     Route: 048
     Dates: start: 20130430, end: 20130911
  3. PRECIPITATED CALCIUM CARBONATE [Concomitant]
     Route: 048
     Dates: start: 20130430, end: 20130911
  4. DECADRON                           /00016001/ [Concomitant]
     Indication: PROSTATE CANCER
     Route: 048
     Dates: start: 20120202, end: 20130911
  5. URIEF [Concomitant]
     Indication: NEUROGENIC BLADDER
     Route: 048
     Dates: start: 20120202, end: 20130911
  6. BESACOLIN [Concomitant]
     Indication: NEUROGENIC BLADDER
     Route: 048
     Dates: start: 20120202, end: 20130911
  7. UFT [Concomitant]
     Indication: PROSTATE CANCER
     Route: 048
     Dates: start: 20120202, end: 20130911
  8. AMLODIPINE [Concomitant]
     Indication: HYPERTENSION
     Dosage: 5 MG, QD
     Route: 048
     Dates: end: 20130911
  9. NU-LOTAN [Concomitant]
     Indication: HYPERTENSION
     Route: 048
     Dates: end: 20130911
  10. CALCICOL [Concomitant]
     Dosage: UNK
     Route: 042
     Dates: start: 20131003
  11. VITAMIN D                          /00107901/ [Concomitant]
     Route: 048

REACTIONS (5)
  - Pyrexia [Recovered/Resolved]
  - Chills [Recovered/Resolved]
  - Chills [Recovered/Resolved]
  - Diarrhoea [Recovering/Resolving]
  - Hypocalcaemia [Recovering/Resolving]
